FAERS Safety Report 7511867-2 (Version None)
Quarter: 2011Q2

REPORT INFORMATION
  Report Type: 
  Country: None (occurrence: None)
  Receive Date: 20110531
  Receipt Date: 20110517
  Transmission Date: 20111010
  Serious: Yes (Hospitalization)
  Sender: FDA-Public Use
  Company Number: US-AMGEN-USASP2011023625

PATIENT
  Age: 59 Year
  Sex: Male

DRUGS (2)
  1. TREXALL [Concomitant]
  2. ENBREL [Suspect]
     Indication: RHEUMATOID ARTHRITIS
     Dosage: 25 MG, UNK
     Dates: start: 20011106

REACTIONS (5)
  - ARTHROPATHY [None]
  - JOINT RANGE OF MOTION DECREASED [None]
  - INJECTION SITE PAIN [None]
  - ARTHRALGIA [None]
  - SINUSITIS [None]
